FAERS Safety Report 8819302 (Version 3)
Quarter: 2012Q4

REPORT INFORMATION
  Report Type: 
  Country: US (occurrence: US)
  Receive Date: 20121001
  Receipt Date: 20121116
  Transmission Date: 20130627
  Serious: Yes (Hospitalization)
  Sender: FDA-Public Use
  Company Number: US-BAYER-2012-099525

PATIENT
  Age: 33 Year
  Sex: Female

DRUGS (6)
  1. YAZ [Suspect]
     Indication: POLYCYSTIC OVARIAN SYNDROME
     Dosage: UNK
     Dates: start: 200610, end: 201102
  2. YAZ [Suspect]
     Indication: CONTRACEPTION
     Dosage: UNK
     Dates: end: 201105
  3. ADVIL [Concomitant]
  4. FLEXERIL [Concomitant]
  5. NSAID^S [Concomitant]
     Dosage: UNK UNK, PRN
  6. ASTHMA/BREATHING MEDICATIONS [Concomitant]
     Dosage: UNK
     Dates: start: 201105, end: 201106

REACTIONS (14)
  - Pulmonary embolism [None]
  - Pulmonary embolism [None]
  - Pelvic venous thrombosis [None]
  - Cholelithiasis [None]
  - General physical health deterioration [None]
  - Emotional distress [None]
  - Injury [None]
  - Anhedonia [None]
  - Anxiety [None]
  - Pain [None]
  - Chest pain [None]
  - Back pain [None]
  - Vomiting [None]
  - Fear [None]
